FAERS Safety Report 6047093-6 (Version None)
Quarter: 2009Q1

REPORT INFORMATION
  Report Type: 
  Country: None (occurrence: None)
  Receive Date: 20090121
  Receipt Date: 20081020
  Transmission Date: 20090719
  Serious: No
  Sender: FDA-Public Use
  Company Number: A-US2008-22387

PATIENT
  Age: 71 Year
  Sex: Male

DRUGS (4)
  1. TRACLEER [Suspect]
     Indication: PULMONARY ARTERIAL HYPERTENSION
     Dosage: 62.5 MG, BID, ORAL
     Route: 048
     Dates: start: 20080101
  2. ACE INHIBITOR NOS() [Suspect]
  3. COUMADIN [Concomitant]
  4. NEURONTIN [Concomitant]

REACTIONS (7)
  - BALANCE DISORDER [None]
  - DERMATITIS [None]
  - GAIT DISTURBANCE [None]
  - NEUROPATHY PERIPHERAL [None]
  - PAIN IN EXTREMITY [None]
  - RENAL FAILURE ACUTE [None]
  - SKIN EXFOLIATION [None]
